FAERS Safety Report 5593017-5 (Version None)
Quarter: 2007Q4

REPORT INFORMATION
  Report Type: 
  Country: None (occurrence: None)
  Receive Date: 20071217
  Receipt Date: 20071030
  Transmission Date: 20080405
  Serious: No
  Sender: FDA-Public Use
  Company Number: BDI-010478

PATIENT
  Age: 71 Year
  Sex: Male
  Weight: 107 kg

DRUGS (4)
  1. MULTIHANCE [Suspect]
     Indication: NUCLEAR MAGNETIC RESONANCE IMAGING
     Dosage: IV
     Route: 042
     Dates: start: 20071018, end: 20071018
  2. MULTIHANCE [Suspect]
     Indication: PAIN IN EXTREMITY
     Dosage: IV
     Route: 042
     Dates: start: 20071018, end: 20071018
  3. MULTIHANCE [Suspect]
     Indication: NUCLEAR MAGNETIC RESONANCE IMAGING
     Dosage: IV
     Route: 042
     Dates: start: 20071018, end: 20071018
  4. MULTIHANCE [Suspect]
     Indication: PAIN IN EXTREMITY
     Dosage: IV
     Route: 042
     Dates: start: 20071018, end: 20071018

REACTIONS (2)
  - NAUSEA [None]
  - VOMITING [None]
